FAERS Safety Report 6096258-6 (Version None)
Quarter: 2009Q1

REPORT INFORMATION
  Report Type: 
  Country: None (occurrence: None)
  Receive Date: 20090227
  Receipt Date: 20081110
  Transmission Date: 20090719
  Serious: No
  Sender: FDA-Public Use
  Company Number: A0753066A

PATIENT
  Age: 33 Year
  Sex: Female
  Weight: 79.5 kg

DRUGS (2)
  1. LAMICTAL [Suspect]
     Indication: DEPRESSION
     Dosage: 200MG PER DAY
     Route: 048
     Dates: start: 20080909, end: 20081015
  2. AMBIEN [Concomitant]
     Indication: INSOMNIA
     Dosage: 10MG AT NIGHT
     Route: 048
     Dates: start: 20080909

REACTIONS (2)
  - PAIN IN EXTREMITY [None]
  - RASH GENERALISED [None]
